FAERS Safety Report 18969079 (Version 5)
Quarter: 2022Q2

REPORT INFORMATION
  Report Type: Spontaneous
  Country: IN (occurrence: IN)
  Receive Date: 20210304
  Receipt Date: 20220613
  Transmission Date: 20220721
  Serious: Yes (Death, Other)
  Sender: FDA-Public Use
  Company Number: IN-PFIZER INC-2020161546

PATIENT
  Age: 54 Year
  Sex: Female

DRUGS (2)
  1. PALBOCICLIB [Suspect]
     Active Substance: PALBOCICLIB
     Indication: Breast cancer metastatic
     Dosage: 125 MG, CYCLIC (ONCE A DAY FOR 21 DAYS/30 DAYS FOR 4 MONTHS)
     Route: 048
     Dates: start: 20190206
  2. MUCAINE gel [Concomitant]
     Dosage: 10 ML, 2X/DAY

REACTIONS (7)
  - Death [Fatal]
  - Neuropathy peripheral [Unknown]
  - Cataract [Unknown]
  - Tooth disorder [Unknown]
  - Neoplasm progression [Unknown]
  - Mucosal inflammation [Unknown]
  - Lymphoedema [Unknown]

NARRATIVE: CASE EVENT DATE: 20200301
